FAERS Safety Report 8388134-0 (Version None)
Quarter: 2012Q2

REPORT INFORMATION
  Report Type: 
  Country: None (occurrence: None)
  Receive Date: 20120525
  Receipt Date: 20120524
  Transmission Date: 20120825
  Serious: Yes (Life-Threatening, Hospitalization, Other)
  Sender: FDA-Public Use
  Company Number: JP-EISAI INC-E2020-10829-SPO-JP

PATIENT
  Age: 84 Year
  Sex: Female
  Weight: 54 kg

DRUGS (19)
  1. LIVACT [Concomitant]
     Route: 048
     Dates: end: 20120213
  2. ISOSORBIDE MONONITRATE [Concomitant]
     Route: 048
     Dates: end: 20120213
  3. TRIAZOLAM [Concomitant]
     Indication: INSOMNIA
     Route: 048
     Dates: end: 20120213
  4. ARICEPT [Suspect]
     Indication: DEMENTIA ALZHEIMER'S TYPE
     Route: 048
     Dates: end: 20120213
  5. LOXONIN [Concomitant]
     Route: 048
     Dates: end: 20120213
  6. LANSOPRAZOLE [Concomitant]
     Route: 048
     Dates: start: 20120218
  7. CILOSTAZO [Concomitant]
     Route: 048
     Dates: end: 20120213
  8. URSO 250 [Concomitant]
     Route: 048
     Dates: end: 20120213
  9. ISOSORBIDE MONONITRATE [Concomitant]
     Route: 048
     Dates: start: 20120218
  10. LASIX [Concomitant]
     Route: 042
  11. CILOSTAZO [Concomitant]
     Route: 048
     Dates: start: 20120218
  12. TRIAZOLAM [Concomitant]
     Route: 048
     Dates: start: 20120218
  13. URSO 250 [Concomitant]
     Route: 048
     Dates: start: 20120218
  14. LIVACT [Concomitant]
     Route: 048
     Dates: start: 20120218
  15. ASPIRIN [Concomitant]
     Route: 048
     Dates: end: 20120213
  16. ASPIRIN [Concomitant]
     Route: 048
     Dates: start: 20120218
  17. LOXONIN [Concomitant]
     Route: 048
     Dates: start: 20120218
  18. LANSOPRAZOLE [Concomitant]
     Route: 048
     Dates: end: 20120213
  19. VERAPAMIL HCL [Suspect]
     Indication: ATRIAL FIBRILLATION
     Route: 048
     Dates: end: 20120213

REACTIONS (1)
  - LONG QT SYNDROME [None]
